FAERS Safety Report 7096739-2 (Version None)
Quarter: 2010Q4

REPORT INFORMATION
  Report Type: 
  Country: None (occurrence: None)
  Receive Date: 20101111
  Receipt Date: 20080305
  Transmission Date: 20110411
  Serious: No
  Sender: FDA-Public Use
  Company Number: US-KINGPHARMUSA00001-K200800289

PATIENT
  Sex: Female

DRUGS (2)
  1. SKELAXIN [Suspect]
     Indication: MYALGIA
     Dosage: 1ST DAY: 1/3 TAB TID
     Dates: start: 20080201
  2. SKELAXIN [Suspect]
     Dosage: 2ND DAY: 1 TAB, TID

REACTIONS (1)
  - ALOPECIA [None]
